FAERS Safety Report 8882670 (Version 1)
Quarter: 2012Q4

REPORT INFORMATION
  Report Type: 
  Country: US (occurrence: US)
  Receive Date: 20121102
  Receipt Date: 20121102
  Transmission Date: 20130627
  Serious: Yes (Hospitalization, Other)
  Sender: FDA-Public Use
  Company Number: PHHY2012US098378

PATIENT
  Age: 63 Year
  Sex: Female

DRUGS (6)
  1. LISINOPRIL [Suspect]
     Dosage: 10 mg, QD
  2. LISINOPRIL [Suspect]
     Dosage: 20 mg, QD
  3. IBUPROFEN [Suspect]
     Indication: BACK PAIN
     Dosage: 800 mg, TID
  4. FLUDROCORTISONE [Suspect]
     Dosage: 0.1 mg, QD
  5. METOPROLOL [Concomitant]
     Dosage: 25 mg, QD
  6. ASPIRIN [Concomitant]
     Dosage: 81 mg, QD

REACTIONS (13)
  - Renal failure acute [Recovered/Resolved]
  - Glomerulonephritis membranous [Recovered/Resolved]
  - Dizziness postural [Recovered/Resolved]
  - Hypovolaemia [Recovered/Resolved]
  - Proteinuria [Recovered/Resolved]
  - Asthenia [Recovered/Resolved]
  - Oedema peripheral [Recovered/Resolved]
  - Renal atrophy [Recovered/Resolved]
  - Hyperkalaemia [Recovered/Resolved]
  - Weight decreased [Recovered/Resolved]
  - Dyspnoea exertional [Recovered/Resolved]
  - Pulse waveform abnormal [Recovered/Resolved]
  - Hypoaldosteronism [Recovered/Resolved]
